FAERS Safety Report 13594274 (Version 28)
Quarter: 2019Q3

REPORT INFORMATION
  Report Type: Report from Study
  Country: US (occurrence: US)
  Receive Date: 20170530
  Receipt Date: 20190826
  Transmission Date: 20191004
  Serious: Yes (Life-Threatening, Hospitalization, Other)
  Sender: FDA-Public Use
  Company Number: US-ACTELION-A-NJ2017-154486

PATIENT
  Age: 61 Year
  Sex: Female
  Weight: 95.24 kg

DRUGS (10)
  1. SILDENAFIL. [Suspect]
     Active Substance: SILDENAFIL
     Indication: PRODUCT USED FOR UNKNOWN INDICATION
     Dosage: 20 MG, TID
     Route: 065
     Dates: start: 20160606
  2. DILTIAZEM. [Interacting]
     Active Substance: DILTIAZEM
     Indication: PRODUCT USED FOR UNKNOWN INDICATION
     Route: 048
  3. UPTRAVI [Suspect]
     Active Substance: SELEXIPAG
     Dosage: 1200 MCG, BID
     Route: 048
  4. UPTRAVI [Suspect]
     Active Substance: SELEXIPAG
     Dosage: 600 MCG, BID
     Route: 048
     Dates: start: 20170327
  5. UPTRAVI [Suspect]
     Active Substance: SELEXIPAG
     Dosage: 1600 MCG, BID
     Route: 048
  6. OPSUMIT [Suspect]
     Active Substance: MACITENTAN
     Indication: PULMONARY HYPERTENSION
     Dosage: 10 MG, QD
     Route: 048
     Dates: start: 20151002
  7. UPTRAVI [Suspect]
     Active Substance: SELEXIPAG
     Indication: PULMONARY HYPERTENSION
     Dosage: 1400 MCG, BID
     Route: 048
     Dates: start: 20171023
  8. UPTRAVI [Suspect]
     Active Substance: SELEXIPAG
     Dosage: 800 MCG, BID
     Route: 048
     Dates: start: 20171103
  9. UPTRAVI [Suspect]
     Active Substance: SELEXIPAG
     Dosage: 400 MCG, BID
     Route: 048
  10. OXYGEN. [Concomitant]
     Active Substance: OXYGEN

REACTIONS (41)
  - Myalgia [Not Recovered/Not Resolved]
  - Fluid retention [Unknown]
  - Chest pain [Unknown]
  - Angina pectoris [Unknown]
  - Coma [Unknown]
  - Hepatic haemorrhage [Unknown]
  - Fatigue [Recovering/Resolving]
  - Blood potassium decreased [Unknown]
  - Splenomegaly [Unknown]
  - Pancreatic disorder [Unknown]
  - Rash [Unknown]
  - Ammonia increased [Unknown]
  - Packed red blood cell transfusion [Recovering/Resolving]
  - Oedema [Unknown]
  - Dyspnoea [Unknown]
  - Dizziness [Not Recovered/Not Resolved]
  - Weight decreased [Not Recovered/Not Resolved]
  - Pneumonia [Unknown]
  - Arthralgia [Not Recovered/Not Resolved]
  - Muscle spasms [Unknown]
  - Haemorrhoids [Recovering/Resolving]
  - Rash pruritic [Unknown]
  - Drug interaction [Unknown]
  - Headache [Unknown]
  - Blood iron decreased [Unknown]
  - Photophobia [Unknown]
  - Condition aggravated [Recovering/Resolving]
  - Tachycardia [Not Recovered/Not Resolved]
  - Hepatic encephalopathy [Recovering/Resolving]
  - Non-alcoholic steatohepatitis [Unknown]
  - Diabetes mellitus [Unknown]
  - Hepatic failure [Unknown]
  - Oxygen consumption [Unknown]
  - Peripheral swelling [Unknown]
  - Back pain [Unknown]
  - Platelet count decreased [Recovering/Resolving]
  - Haemoglobin decreased [Recovering/Resolving]
  - Pulmonary hypertension [Unknown]
  - Myocardial infarction [Unknown]
  - Diarrhoea [Unknown]
  - Iron deficiency anaemia [Not Recovered/Not Resolved]

NARRATIVE: CASE EVENT DATE: 2017
